FAERS Safety Report 10470092 (Version 4)
Quarter: 2014Q4

REPORT INFORMATION
  Report Type: Not Available
  Country: FR (occurrence: FR)
  Receive Date: 20140923
  Receipt Date: 20141219
  Transmission Date: 20150528
  Serious: Yes (Life-Threatening, Hospitalization)
  Sender: FDA-Public Use
  Company Number: FR-MUNDIPHARMA DS AND PHARMACOVIGILANCE-GBR-2014-0021579

PATIENT
  Age: 48 Year
  Sex: Female
  Weight: 67 kg

DRUGS (7)
  1. MOSCONTIN 100 MG, COMPRIME ENROBE A LIBERATION PROLONGEE [Suspect]
     Active Substance: MORPHINE SULFATE
     Indication: PAIN
     Dosage: 300 MG, SINGLE
     Route: 048
     Dates: start: 20140801, end: 20140801
  2. EFFEXOR [Concomitant]
     Active Substance: VENLAFAXINE HYDROCHLORIDE
  3. LAROXYL [Concomitant]
     Active Substance: AMITRIPTYLINE
  4. TRUVADA [Concomitant]
     Active Substance: EMTRICITABINE\TENOFOVIR DISOPROXIL FUMARATE
  5. NORVIR [Concomitant]
     Active Substance: RITONAVIR
  6. IMOVANE [Concomitant]
     Active Substance: ZOPICLONE
  7. PREZISTA [Concomitant]
     Active Substance: DARUNAVIR ETHANOLATE

REACTIONS (4)
  - Drug abuse [Unknown]
  - Rhabdomyolysis [Unknown]
  - Respiratory distress [Recovered/Resolved]
  - Pneumonia klebsiella [Recovered/Resolved]

NARRATIVE: CASE EVENT DATE: 20140801
